FAERS Safety Report 10219747 (Version 1)
Quarter: 2014Q2

REPORT INFORMATION
  Report Type: Spontaneous
  Country: US (occurrence: None)
  Receive Date: 20140604
  Receipt Date: 20140604
  Transmission Date: 20141212
  Serious: Yes (Life-Threatening, Hospitalization)
  Sender: FDA-Public Use
  Company Number: None

PATIENT
  Age: 70 Year
  Sex: Male
  Weight: 80.29 kg

DRUGS (2)
  1. RITUXAN [Suspect]
     Indication: CHRONIC LYMPHOCYTIC LEUKAEMIA
     Route: 042
     Dates: start: 20140602
  2. RITUXAN [Suspect]
     Dosage: LOT# ?590557?EXP#?MAY 2016

REACTIONS (4)
  - Dizziness [None]
  - Respiratory arrest [None]
  - Pulse absent [None]
  - Blood pressure decreased [None]
